FAERS Safety Report 21283266 (Version 1)
Quarter: 2022Q3

REPORT INFORMATION
  Report Type: Spontaneous
  Country: CN (occurrence: CN)
  Receive Date: 20220901
  Receipt Date: 20220901
  Transmission Date: 20221027
  Serious: Yes (Hospitalization, Other)
  Sender: FDA-Public Use
  Company Number: None

PATIENT
  Age: 49 Year
  Sex: Male
  Weight: 64 kg

DRUGS (12)
  1. CYCLOPHOSPHAMIDE [Suspect]
     Active Substance: CYCLOPHOSPHAMIDE
     Indication: Non-Hodgkin^s lymphoma
     Dosage: 0.27G, Q12H D1-3, ROUTE: MICROPUMP,  DILUTED WITH 0.9% SODIUM CHLORIDE INJECTION 40ML
     Route: 040
     Dates: start: 20220715, end: 20220717
  2. SODIUM CHLORIDE [Suspect]
     Active Substance: SODIUM CHLORIDE
     Indication: Medication dilution
     Dosage: 600 ML (D1), DILUTED IN RITUXIMAB INJECTION 600 MG
     Route: 065
     Dates: start: 20220715, end: 20220715
  3. SODIUM CHLORIDE [Suspect]
     Active Substance: SODIUM CHLORIDE
     Dosage: 40ML Q12H, ROUTE: MICROPUMP DILUTED IN CYCLOPHOSPHAMIDE FOR INJECTION 0.27G
     Route: 040
     Dates: start: 20220715, end: 20220717
  4. SODIUM CHLORIDE [Suspect]
     Active Substance: SODIUM CHLORIDE
     Dosage: 40ML, ONCE, ROUTE: MICROPUMP DILUTED IN VINDESINE FOR INJECTION 4 MG (D4)
     Route: 040
     Dates: start: 20220718, end: 20220718
  5. SODIUM CHLORIDE [Suspect]
     Active Substance: SODIUM CHLORIDE
     Dosage: 40ML, ONCE, ROUTE: MICROPUMP DILUTED IN VINDESINE FOR INJECTION 4 MG (D11)
     Route: 040
     Dates: start: 20220725, end: 20220725
  6. SODIUM CHLORIDE [Suspect]
     Active Substance: SODIUM CHLORIDE
     Dosage: 2 ML, ONCE (DILUTED IN CYTARABINE FOR INJECTION 50 MG )
     Route: 037
     Dates: start: 20220714, end: 20220714
  7. DEXTROSE MONOHYDRATE [Suspect]
     Active Substance: DEXTROSE MONOHYDRATE
     Indication: Medication dilution
     Dosage: 250 ML, ONCE, DILUTED WITH DOXORUBICIN LIPOSOME INJECTION 36 MG) (D4)
     Route: 041
     Dates: start: 20220718, end: 20220718
  8. DOXORUBICIN HYDROCHLORIDE [Suspect]
     Active Substance: DOXORUBICIN HYDROCHLORIDE
     Indication: Non-Hodgkin^s lymphoma
     Dosage: 36 MG, ONCE, DILUTED WITH 5% GLUCOSE INJECTION 250ML) (D4)
     Route: 041
     Dates: start: 20220718, end: 20220718
  9. VINDESINE SULFATE [Suspect]
     Active Substance: VINDESINE SULFATE
     Indication: Non-Hodgkin^s lymphoma
     Dosage: 4 MG, ONCE, ROUTE: MICROPUMP DILUTED WITH 0.9% SODIUM CHLORIDE INJECTION 40ML (D4)
     Route: 040
     Dates: start: 20220718, end: 20220718
  10. VINDESINE SULFATE [Suspect]
     Active Substance: VINDESINE SULFATE
     Dosage: 4 MG, ONCE, ROUTE: MICROPUMP DILUTED WITH 0.9% SODIUM CHLORIDE INJECTION 40ML (D11)
     Route: 040
     Dates: start: 20220725, end: 20220725
  11. CYTARABINE [Suspect]
     Active Substance: CYTARABINE
     Indication: Non-Hodgkin^s lymphoma
     Dosage: 50 MG ONCE DAILY DILUTED WITH 0.9% SODIUM CHLORIDE INJECTION 2ML
     Route: 037
     Dates: start: 20220714, end: 20220714
  12. RITUXIMAB [Suspect]
     Active Substance: RITUXIMAB
     Indication: Non-Hodgkin^s lymphoma
     Dosage: 600 MG (D1) DILUTED WITH 0.9% SODIUM CHLORIDE INJECTION 600 ML
     Route: 041
     Dates: start: 20220715, end: 20220715

REACTIONS (1)
  - Myelosuppression [Recovering/Resolving]

NARRATIVE: CASE EVENT DATE: 20220721
